FAERS Safety Report 6384238-2 (Version None)
Quarter: 2009Q4

REPORT INFORMATION
  Report Type: 
  Country: None (occurrence: None)
  Receive Date: 20091001
  Receipt Date: 20090923
  Transmission Date: 20100525
  Serious: Yes (Hospitalization)
  Sender: FDA-Public Use
  Company Number: B0595833A

PATIENT
  Sex: Female

DRUGS (11)
  1. DILATREND [Suspect]
     Indication: DRUG USE FOR UNKNOWN INDICATION
     Route: 048
  2. LANTUS [Suspect]
     Indication: DRUG USE FOR UNKNOWN INDICATION
     Dosage: 10IU PER DAY
     Route: 058
     Dates: end: 20090825
  3. NOVONORM [Suspect]
     Indication: DRUG USE FOR UNKNOWN INDICATION
     Route: 058
     Dates: end: 20090825
  4. SINTROM [Concomitant]
  5. AMLODIPINE [Concomitant]
  6. ATACAND [Concomitant]
  7. NITRODERM [Concomitant]
  8. TORSEMIDE [Concomitant]
  9. METOLAZONE [Concomitant]
  10. OMEPRAZOLE [Concomitant]
  11. DISTRANEURIN [Concomitant]

REACTIONS (4)
  - DRUG INTERACTION [None]
  - FALL [None]
  - HYPOGLYCAEMIA [None]
  - SOMNOLENCE [None]
